FAERS Safety Report 24960339 (Version 1)
Quarter: 2025Q1

REPORT INFORMATION
  Report Type: Spontaneous
  Country: CA (occurrence: CA)
  Receive Date: 20250212
  Receipt Date: 20250212
  Transmission Date: 20250408
  Serious: Yes (Death)
  Sender: MYLAN
  Company Number: CA-MYLANLABS-2025M1012444

PATIENT
  Sex: Female

DRUGS (1)
  1. REVATIO [Suspect]
     Active Substance: SILDENAFIL CITRATE
     Indication: Connective tissue disorder
     Dosage: 20 MILLIGRAM, TID (THREE TIMES A DAYS)
     Route: 048
     Dates: start: 20230105

REACTIONS (1)
  - Death [Fatal]
